FAERS Safety Report 4752651-2 (Version None)
Quarter: 2005Q3

REPORT INFORMATION
  Report Type: 
  Country: None (occurrence: None)
  Receive Date: 20050823
  Receipt Date: 20050808
  Transmission Date: 20060218
  Serious: Yes (Hospitalization, Other)
  Sender: FDA-Public Use
  Company Number: EWC050845366

PATIENT
  Age: 44 Year
  Sex: Female

DRUGS (3)
  1. ZYPREXA [Suspect]
     Indication: BIPOLAR DISORDER
     Dosage: 5 MG/1 DAY
  2. DEPAKENE [Concomitant]
  3. ORGANOMETRIL [Concomitant]

REACTIONS (4)
  - DYSPNOEA [None]
  - OEDEMA [None]
  - VIRAL INFECTION [None]
  - WEIGHT INCREASED [None]
